FAERS Safety Report 10930846 (Version 1)
Quarter: 2015Q1

REPORT INFORMATION
  Report Type: Spontaneous
  Country: US (occurrence: US)
  Receive Date: 20150319
  Receipt Date: 20150319
  Transmission Date: 20150721
  Serious: No
  Sender: FDA-Public Use
  Company Number: US-BAUSCH-SYM-2014-17368

PATIENT
  Age: 26 Year
  Sex: Female

DRUGS (6)
  1. AVEENO FOAMING CLEANSER [Concomitant]
     Indication: PRODUCT USED FOR UNKNOWN INDICATION
  2. NU-DERM GENTLE CLEANSER [Suspect]
     Active Substance: COSMETICS
     Indication: PRODUCT USED FOR UNKNOWN INDICATION
     Route: 061
  3. NU-DERM TONER [Suspect]
     Active Substance: COSMETICS
     Indication: PRODUCT USED FOR UNKNOWN INDICATION
     Route: 061
  4. NU-DERM EXFODERM FORTE [Suspect]
     Active Substance: COSMETICS
     Indication: PRODUCT USED FOR UNKNOWN INDICATION
     Route: 061
  5. RETIN-A [Suspect]
     Active Substance: TRETINOIN
     Indication: PRODUCT USED FOR UNKNOWN INDICATION
     Route: 061
  6. OBAGI [Suspect]
     Active Substance: OCTINOXATE\TRETINOIN\ZINC OXIDE
     Route: 061

REACTIONS (1)
  - Application site rash [Unknown]
